FAERS Safety Report 6542248-6 (Version None)
Quarter: 2010Q1

REPORT INFORMATION
  Report Type: 
  Country: None (occurrence: None)
  Receive Date: 20100119
  Receipt Date: 20100112
  Transmission Date: 20100710
  Serious: Yes (Other)
  Sender: FDA-Public Use
  Company Number: D0064771A

PATIENT
  Age: 76 Year
  Sex: Female

DRUGS (1)
  1. REQUIP [Suspect]
     Route: 048
     Dates: start: 20091125

REACTIONS (3)
  - ANXIETY [None]
  - DELUSION [None]
  - HALLUCINATION [None]
